FAERS Safety Report 14552230 (Version 1)
Quarter: 2018Q1

REPORT INFORMATION
  Report Type: Spontaneous
  Country: US (occurrence: US)
  Receive Date: 20180216
  Receipt Date: 20180216
  Transmission Date: 20180509
  Serious: Yes (Hospitalization)
  Sender: FDA-Public Use
  Company Number: None

PATIENT
  Age: 61 Year
  Sex: Female

DRUGS (1)
  1. DAPTOMYCIN. [Suspect]
     Active Substance: DAPTOMYCIN
     Indication: OSTEOMYELITIS
     Dosage: 850MG Q24HRS IV PUSH
     Route: 042
     Dates: start: 20180214, end: 20180215

REACTIONS (5)
  - Chills [None]
  - Swollen tongue [None]
  - Dyspnoea [None]
  - Lip swelling [None]
  - Tremor [None]

NARRATIVE: CASE EVENT DATE: 20180215
